FAERS Safety Report 6784482-6 (Version None)
Quarter: 2010Q2

REPORT INFORMATION
  Report Type: 
  Country: None (occurrence: None)
  Receive Date: 20100622
  Receipt Date: 20100614
  Transmission Date: 20101027
  Serious: Yes (Other)
  Sender: FDA-Public Use
  Company Number: US-ABBOTT-10P-163-0650897-00

PATIENT
  Sex: Female
  Weight: 74.91 kg

DRUGS (7)
  1. TRICOR [Suspect]
     Indication: BLOOD TRIGLYCERIDES INCREASED
     Dates: start: 20091101
  2. SUDAFED 12 HOUR [Concomitant]
     Indication: DRUG USE FOR UNKNOWN INDICATION
  3. ZERTEC [Concomitant]
     Indication: DRUG USE FOR UNKNOWN INDICATION
  4. BENADRYL [Concomitant]
     Indication: DRUG USE FOR UNKNOWN INDICATION
  5. CHLOR-TRIMETON [Concomitant]
     Indication: DRUG USE FOR UNKNOWN INDICATION
  6. IMODIUM [Concomitant]
     Indication: IRRITABLE BOWEL SYNDROME
  7. VITAMIN B-12 [Concomitant]
     Indication: VITAMIN B12 DEFICIENCY
     Dosage: 1 INJ MONTHLY

REACTIONS (3)
  - INCREASED APPETITE [None]
  - TONSILLAR DISORDER [None]
  - WEIGHT INCREASED [None]
